FAERS Safety Report 21124026 (Version 3)
Quarter: 2022Q4

REPORT INFORMATION
  Report Type: Report from Study
  Country: US (occurrence: None)
  Receive Date: 20220725
  Receipt Date: 20221006
  Transmission Date: 20230113
  Serious: Yes (Hospitalization, Other)
  Sender: FDA-Public Use
  Company Number: US-Merck Healthcare KGaA-9215555

PATIENT
  Age: 57 Year
  Sex: Male

DRUGS (2)
  1. REBIF [Suspect]
     Active Substance: INTERFERON BETA-1A
     Indication: Multiple sclerosis
     Route: 058
     Dates: start: 20100904
  2. REBIF [Suspect]
     Active Substance: INTERFERON BETA-1A
     Route: 058
     Dates: start: 2011

REACTIONS (12)
  - Cardiac operation [Recovered/Resolved]
  - Vascular graft [Unknown]
  - Hypertension [Recovering/Resolving]
  - Heart rate irregular [Not Recovered/Not Resolved]
  - Cerebrovascular accident [Recovered/Resolved]
  - Transient ischaemic attack [Recovered/Resolved]
  - Deep vein thrombosis [Recovered/Resolved]
  - Sinusitis [Unknown]
  - Anaemia [Unknown]
  - Thyroid disorder [Unknown]
  - Blood cholesterol increased [Recovering/Resolving]
  - Blood pressure systolic decreased [Recovering/Resolving]

NARRATIVE: CASE EVENT DATE: 20160101
